FAERS Safety Report 22622743 (Version 1)
Quarter: 2023Q2

REPORT INFORMATION
  Report Type: Spontaneous
  Country: CA (occurrence: CA)
  Receive Date: 20230621
  Receipt Date: 20230621
  Transmission Date: 20230721
  Serious: Yes (Hospitalization, Congenital Anomaly, Other)
  Sender: FDA-Public Use
  Company Number: CA-BRISTOL-MYERS SQUIBB COMPANY-2023-085093

PATIENT
  Age: 63 Year
  Sex: Female

DRUGS (95)
  1. ORENCIA [Suspect]
     Active Substance: ABATACEPT
     Indication: Rheumatoid arthritis
  2. ORENCIA [Suspect]
     Active Substance: ABATACEPT
     Route: 042
  3. ORENCIA [Suspect]
     Active Substance: ABATACEPT
     Route: 042
  4. ORENCIA [Suspect]
     Active Substance: ABATACEPT
  5. ORENCIA [Suspect]
     Active Substance: ABATACEPT
     Route: 042
  6. ORENCIA [Suspect]
     Active Substance: ABATACEPT
     Route: 042
  7. ORENCIA [Suspect]
     Active Substance: ABATACEPT
     Route: 042
  8. ORENCIA [Suspect]
     Active Substance: ABATACEPT
     Route: 042
  9. SACCHARATED IRON OXIDE [Concomitant]
     Active Substance: IRON SUCROSE
     Indication: Product used for unknown indication
  10. PLAQUENIL [Concomitant]
     Active Substance: HYDROXYCHLOROQUINE SULFATE
     Indication: Rheumatoid arthritis
  11. ASPIRIN [Concomitant]
     Active Substance: ASPIRIN
     Indication: Product used for unknown indication
  12. ACTEMRA [Concomitant]
     Active Substance: TOCILIZUMAB
     Indication: Rheumatoid arthritis
     Route: 058
  13. ACTEMRA [Concomitant]
     Active Substance: TOCILIZUMAB
  14. ACTEMRA [Concomitant]
     Active Substance: TOCILIZUMAB
  15. ACTEMRA [Concomitant]
     Active Substance: TOCILIZUMAB
     Route: 042
  16. ACTEMRA [Concomitant]
     Active Substance: TOCILIZUMAB
  17. ACTEMRA [Concomitant]
     Active Substance: TOCILIZUMAB
  18. ACTEMRA [Concomitant]
     Active Substance: TOCILIZUMAB
     Route: 058
  19. ALENDRONATE SODIUM [Concomitant]
     Active Substance: ALENDRONATE SODIUM
     Indication: Product used for unknown indication
  20. ALPRAZOLAM [Concomitant]
     Active Substance: ALPRAZOLAM
     Indication: Product used for unknown indication
  21. AMLODIPINE [Concomitant]
     Active Substance: AMLODIPINE BESYLATE
     Indication: Product used for unknown indication
  22. AMLODIPINE BESYLATE [Concomitant]
     Active Substance: AMLODIPINE BESYLATE
     Indication: Product used for unknown indication
  23. AZATHIOPRINE [Concomitant]
     Active Substance: AZATHIOPRINE
     Indication: Rheumatoid arthritis
  24. LEFLUNOMIDE [Concomitant]
     Active Substance: LEFLUNOMIDE
     Indication: Rheumatoid arthritis
     Route: 042
  25. LEFLUNOMIDE [Concomitant]
     Active Substance: LEFLUNOMIDE
     Route: 048
  26. LEFLUNOMIDE [Concomitant]
     Active Substance: LEFLUNOMIDE
  27. ARAVA [Concomitant]
     Active Substance: LEFLUNOMIDE
     Indication: Product used for unknown indication
  28. ATENOLOL [Concomitant]
     Active Substance: ATENOLOL
     Indication: Rheumatoid arthritis
     Dosage: BP
  29. AZATHIOPRINE [Concomitant]
     Active Substance: AZATHIOPRINE
     Indication: Rheumatoid arthritis
  30. BISOPROLOL [Concomitant]
     Active Substance: BISOPROLOL
     Indication: Product used for unknown indication
  31. CELEBREX [Concomitant]
     Active Substance: CELECOXIB
     Indication: Product used for unknown indication
  32. CODEINE [Concomitant]
     Active Substance: CODEINE
     Indication: Rheumatoid arthritis
  33. CYANOCOBALAMIN [Concomitant]
     Active Substance: CYANOCOBALAMIN
     Indication: Product used for unknown indication
  34. ENBREL [Concomitant]
     Active Substance: ETANERCEPT
     Indication: Rheumatoid arthritis
     Route: 058
  35. ENBREL [Concomitant]
     Active Substance: ETANERCEPT
     Route: 058
  36. ERGOCALCIFEROL [Concomitant]
     Active Substance: ERGOCALCIFEROL
     Indication: Product used for unknown indication
  37. ESOMEPRAZOLE MAGNESIUM\NAPROXEN [Concomitant]
     Active Substance: ESOMEPRAZOLE MAGNESIUM\NAPROXEN
     Indication: Product used for unknown indication
  38. FOLIC ACID [Concomitant]
     Active Substance: FOLIC ACID
     Indication: Product used for unknown indication
  39. FOSAMAX [Concomitant]
     Active Substance: ALENDRONATE SODIUM
     Indication: Product used for unknown indication
  40. GOLD [Concomitant]
     Active Substance: GOLD
     Indication: Product used for unknown indication
  41. HUMIRA [Concomitant]
     Active Substance: ADALIMUMAB
     Indication: Rheumatoid arthritis
     Route: 058
  42. HUMIRA [Concomitant]
     Active Substance: ADALIMUMAB
     Route: 058
  43. HUMIRA [Concomitant]
     Active Substance: ADALIMUMAB
  44. HYDROCHLOROTHIAZIDE [Concomitant]
     Active Substance: HYDROCHLOROTHIAZIDE
     Indication: Product used for unknown indication
  45. HYDROXYCHLOROQUINE [Concomitant]
     Active Substance: HYDROXYCHLOROQUINE
     Indication: Rheumatoid arthritis
  46. HYDROXYCHLOROQUINE [Concomitant]
     Active Substance: HYDROXYCHLOROQUINE
     Route: 048
  47. HYDROXYCHLOROQUINE [Concomitant]
     Active Substance: HYDROXYCHLOROQUINE
  48. HYDROXYCHLOROQUINE SULFATE [Concomitant]
     Active Substance: HYDROXYCHLOROQUINE SULFATE
     Indication: Rheumatoid arthritis
     Dosage: USP
  49. HYDROXYCHLOROQUINE SULFATE [Concomitant]
     Active Substance: HYDROXYCHLOROQUINE SULFATE
     Dosage: USP
  50. HYDROXYCHLOROQUINE SULFATE [Concomitant]
     Active Substance: HYDROXYCHLOROQUINE SULFATE
     Dosage: USP
  51. HYDROXYCHLOROQUINE SULFATE [Concomitant]
     Active Substance: HYDROXYCHLOROQUINE SULFATE
     Dosage: USP
     Route: 048
  52. HYDROXYCHLOROQUINE SULFATE [Concomitant]
     Active Substance: HYDROXYCHLOROQUINE SULFATE
     Dosage: USP
  53. HYDROXYCHLOROQUINE SULFATE [Concomitant]
     Active Substance: HYDROXYCHLOROQUINE SULFATE
     Dosage: USP
  54. HYDROXYCHLOROQUINE SULFATE [Concomitant]
     Active Substance: HYDROXYCHLOROQUINE SULFATE
     Dosage: USP
  55. IRON [Concomitant]
     Active Substance: IRON
     Indication: Product used for unknown indication
  56. IRON SUCROSE [Concomitant]
     Active Substance: IRON SUCROSE
     Indication: Product used for unknown indication
  57. LEFLUNOMIDE [Concomitant]
     Active Substance: LEFLUNOMIDE
     Indication: Rheumatoid arthritis
     Route: 048
  58. LEFLUNOMIDE [Concomitant]
     Active Substance: LEFLUNOMIDE
  59. LEFLUNOMIDE [Concomitant]
     Active Substance: LEFLUNOMIDE
  60. LYRICA [Concomitant]
     Active Substance: PREGABALIN
     Indication: Product used for unknown indication
  61. MAGNESIUM OXIDE [Concomitant]
     Active Substance: MAGNESIUM OXIDE
     Indication: Product used for unknown indication
  62. METFORMIN [Concomitant]
     Active Substance: METFORMIN HYDROCHLORIDE
     Indication: Product used for unknown indication
  63. METHOTREXATE [Concomitant]
     Active Substance: METHOTREXATE
     Indication: Rheumatoid arthritis
  64. METHOTREXATE [Concomitant]
     Active Substance: METHOTREXATE
     Route: 058
  65. METHOTREXATE [Concomitant]
     Active Substance: METHOTREXATE
  66. METHOTREXATE [Concomitant]
     Active Substance: METHOTREXATE
  67. METHOTREXATE [Concomitant]
     Active Substance: METHOTREXATE
     Route: 058
  68. METHOTREXATE [Concomitant]
     Active Substance: METHOTREXATE
  69. MORPHINE SULFATE [Concomitant]
     Active Substance: MORPHINE SULFATE
     Indication: Product used for unknown indication
  70. MYOCHRYSINE [Concomitant]
     Active Substance: GOLD SODIUM THIOMALATE
     Indication: Rheumatoid arthritis
     Route: 030
  71. PANTOPRAZOLE SODIUM ANHYDROUS [Concomitant]
     Active Substance: PANTOPRAZOLE SODIUM ANHYDROUS
     Indication: Product used for unknown indication
  72. PAROXETINE HYDROCHLORIDE [Concomitant]
     Active Substance: PAROXETINE HYDROCHLORIDE
     Indication: Product used for unknown indication
  73. PRAMIPEXOLE [Concomitant]
     Active Substance: PRAMIPEXOLE
     Indication: Product used for unknown indication
  74. PRAMIPEXOLE DIHYDROCHLORIDE [Concomitant]
     Active Substance: PRAMIPEXOLE DIHYDROCHLORIDE
     Indication: Product used for unknown indication
  75. PREDNISONE [Concomitant]
     Active Substance: PREDNISONE
     Indication: Product used for unknown indication
  76. PROPRANOLOL [Concomitant]
     Active Substance: PROPRANOLOL HYDROCHLORIDE
     Indication: Product used for unknown indication
  77. RAMIPRIL [Concomitant]
     Active Substance: RAMIPRIL
     Indication: Product used for unknown indication
  78. REMICADE [Concomitant]
     Active Substance: INFLIXIMAB
     Indication: Rheumatoid arthritis
     Dosage: POWDER FOR SOLUTION
     Route: 042
  79. REMICADE [Concomitant]
     Active Substance: INFLIXIMAB
     Indication: Crohn^s disease
     Dosage: POWDER FOR SOLUTION
     Route: 042
  80. RISEDRONATE SODIUM [Concomitant]
     Active Substance: RISEDRONATE SODIUM
     Indication: Product used for unknown indication
  81. RITUXIMAB [Concomitant]
     Active Substance: RITUXIMAB
     Indication: Rheumatoid arthritis
     Route: 042
  82. RITUXIMAB [Concomitant]
     Active Substance: RITUXIMAB
     Route: 042
  83. RITUXIMAB [Concomitant]
     Active Substance: RITUXIMAB
     Route: 042
  84. RITUXIMAB [Concomitant]
     Active Substance: RITUXIMAB
     Route: 042
  85. SERTRALINE [Concomitant]
     Active Substance: SERTRALINE HYDROCHLORIDE
     Indication: Product used for unknown indication
  86. SERTRALINE HYDROCHLORIDE [Concomitant]
     Active Substance: SERTRALINE HYDROCHLORIDE
     Indication: Product used for unknown indication
  87. SIMPONI [Concomitant]
     Active Substance: GOLIMUMAB
     Indication: Product used for unknown indication
     Route: 058
  88. SIMVASTATIN [Concomitant]
     Active Substance: SIMVASTATIN
     Indication: Product used for unknown indication
  89. SULFASALAZINE [Concomitant]
     Active Substance: SULFASALAZINE
     Indication: Rheumatoid arthritis
  90. TELMISARTAN [Concomitant]
     Active Substance: TELMISARTAN
     Indication: Product used for unknown indication
  91. TOCILIZUMAB [Concomitant]
     Active Substance: TOCILIZUMAB
     Indication: Rheumatoid arthritis
  92. TOCILIZUMAB [Concomitant]
     Active Substance: TOCILIZUMAB
  93. TRAZODONE [Concomitant]
     Active Substance: TRAZODONE HYDROCHLORIDE
     Indication: Product used for unknown indication
  94. XELJANZ [Concomitant]
     Active Substance: TOFACITINIB CITRATE
     Indication: Rheumatoid arthritis
     Route: 048
  95. XELJANZ [Concomitant]
     Active Substance: TOFACITINIB CITRATE

REACTIONS (52)
  - Abdominal pain [Unknown]
  - Alanine aminotransferase increased [Unknown]
  - Arthralgia [Unknown]
  - Arthritis [Unknown]
  - Arthropathy [Unknown]
  - Aspartate aminotransferase increased [Unknown]
  - Basal cell carcinoma [Unknown]
  - Blood parathyroid hormone decreased [Unknown]
  - Breath sounds abnormal [Unknown]
  - C-reactive protein increased [Unknown]
  - Condition aggravated [Unknown]
  - Contraindicated product administered [Unknown]
  - Drug eruption [Unknown]
  - Drug hypersensitivity [Unknown]
  - Drug ineffective [Unknown]
  - Drug intolerance [Unknown]
  - Drug tolerance decreased [Unknown]
  - Erythema [Unknown]
  - Granuloma skin [Unknown]
  - Headache [Unknown]
  - Hepatic enzyme increased [Unknown]
  - Hypersensitivity [Unknown]
  - Hypertension [Unknown]
  - Inflammation [Unknown]
  - Infusion related reaction [Unknown]
  - Insomnia [Unknown]
  - Joint swelling [Unknown]
  - Loss of personal independence in daily activities [Unknown]
  - Musculoskeletal stiffness [Unknown]
  - Pain [Unknown]
  - Panniculitis [Unknown]
  - Peripheral swelling [Unknown]
  - Pneumonia [Unknown]
  - Product use issue [Unknown]
  - Pruritus [Unknown]
  - Pulmonary fibrosis [Unknown]
  - Rash [Unknown]
  - Rash pruritic [Unknown]
  - Red blood cell sedimentation rate increased [Unknown]
  - Rheumatoid arthritis [Unknown]
  - Rheumatoid factor positive [Unknown]
  - Rheumatoid nodule [Unknown]
  - Skin necrosis [Unknown]
  - Skin ulcer [Unknown]
  - Synovitis [Unknown]
  - Therapeutic product effect decreased [Unknown]
  - Therapeutic response decreased [Unknown]
  - Treatment failure [Unknown]
  - Ulcer [Unknown]
  - Adverse event [Unknown]
  - Intentional product use issue [Unknown]
  - Congenital anomaly [Unknown]
